FAERS Safety Report 12771504 (Version 1)
Quarter: 2016Q3

REPORT INFORMATION
  Report Type: Spontaneous
  Country: US (occurrence: US)
  Receive Date: 20160922
  Receipt Date: 20160922
  Transmission Date: 20161109
  Serious: Yes (Hospitalization)
  Sender: FDA-Public Use
  Company Number: US-AMGEN-USASP2016048518

PATIENT
  Age: 36 Year
  Sex: Male

DRUGS (2)
  1. SUMATRIPTAN. [Suspect]
     Active Substance: SUMATRIPTAN
     Indication: MIGRAINE
     Dosage: UNK
     Route: 065
  2. NEUPOGEN [Suspect]
     Active Substance: FILGRASTIM
     Indication: PRODUCT USED FOR UNKNOWN INDICATION
     Dosage: UNK
     Route: 065

REACTIONS (9)
  - Spinal pain [Recovered/Resolved]
  - Migraine [Unknown]
  - White blood cell count abnormal [Recovered/Resolved]
  - Neck pain [Not Recovered/Not Resolved]
  - Acne [Unknown]
  - Bone pain [Recovered/Resolved]
  - Dizziness [Not Recovered/Not Resolved]
  - Incorrect dose administered [Unknown]
  - Rash erythematous [Unknown]

NARRATIVE: CASE EVENT DATE: 201508
